FAERS Safety Report 16174156 (Version 1)
Quarter: 2019Q2

REPORT INFORMATION
  Report Type: Spontaneous
  Country: US (occurrence: US)
  Receive Date: 20190306
  Receipt Date: 20190306
  Transmission Date: 20190711
  Serious: No
  Sender: FDA-Public Use
  Company Number: None

PATIENT
  Age: 52 Year
  Sex: Male

DRUGS (1)
  1. PREZCOBIX [Suspect]
     Active Substance: COBICISTAT\DARUNAVIR ETHANOLATE
     Dates: start: 201809, end: 201902

REACTIONS (3)
  - Therapy cessation [None]
  - Rash [None]
  - Lipids increased [None]

NARRATIVE: CASE EVENT DATE: 20190306
